FAERS Safety Report 24449400 (Version 1)
Quarter: 2024Q4

REPORT INFORMATION
  Report Type: Spontaneous
  Country: US (occurrence: US)
  Receive Date: 20241017
  Receipt Date: 20241017
  Transmission Date: 20250115
  Serious: Yes (Other)
  Sender: NOVITIUM PHARMA
  Company Number: US-NOVITIUMPHARMA-2024USNVP02220

PATIENT
  Age: 32 Year
  Sex: Female

DRUGS (12)
  1. HYDROXYCHLOROQUINE SULFATE [Suspect]
     Active Substance: HYDROXYCHLOROQUINE SULFATE
     Indication: Cutaneous lupus erythematosus
  2. HYDROXYCHLOROQUINE SULFATE [Suspect]
     Active Substance: HYDROXYCHLOROQUINE SULFATE
     Indication: Juvenile idiopathic arthritis
  3. HYDROXYCHLOROQUINE SULFATE [Suspect]
     Active Substance: HYDROXYCHLOROQUINE SULFATE
     Indication: Mixed connective tissue disease
  4. PREDNISONE [Suspect]
     Active Substance: PREDNISONE
     Indication: Cutaneous lupus erythematosus
  5. PREDNISONE [Suspect]
     Active Substance: PREDNISONE
     Indication: Juvenile idiopathic arthritis
  6. PREDNISONE [Suspect]
     Active Substance: PREDNISONE
     Indication: Mixed connective tissue disease
  7. AZATHIOPRINE [Concomitant]
     Active Substance: AZATHIOPRINE
     Indication: Juvenile idiopathic arthritis
  8. AZATHIOPRINE [Concomitant]
     Active Substance: AZATHIOPRINE
     Indication: Cutaneous lupus erythematosus
  9. AZATHIOPRINE [Concomitant]
     Active Substance: AZATHIOPRINE
     Indication: Mixed connective tissue disease
  10. BELIMUMAB [Concomitant]
     Active Substance: BELIMUMAB
     Indication: Mixed connective tissue disease
  11. BELIMUMAB [Concomitant]
     Active Substance: BELIMUMAB
     Indication: Cutaneous lupus erythematosus
  12. BELIMUMAB [Concomitant]
     Active Substance: BELIMUMAB
     Indication: Juvenile idiopathic arthritis

REACTIONS (2)
  - Generalised bullous fixed drug eruption [Recovered/Resolved]
  - Drug ineffective [Unknown]
